FAERS Safety Report 4452768-6 (Version None)
Quarter: 2004Q3

REPORT INFORMATION
  Report Type: 
  Country: None (occurrence: None)
  Receive Date: 20040916
  Receipt Date: 20040902
  Transmission Date: 20050211
  Serious: Yes (Hospitalization)
  Sender: FDA-Public Use
  Company Number: 2004AP04217

PATIENT
  Age: 57 Year
  Sex: Male

DRUGS (11)
  1. IRESSA [Suspect]
     Indication: NON-SMALL CELL LUNG CANCER
     Dosage: 250 MG DAILY PO
     Route: 048
     Dates: start: 20040621, end: 20040802
  2. YODEL [Concomitant]
  3. LOXONIN [Concomitant]
  4. CODEINE PHOSPHATE [Concomitant]
  5. MAGNESIUM OXIDE [Concomitant]
  6. SELBEX [Concomitant]
  7. LASIX [Concomitant]
  8. ASPARA K [Concomitant]
  9. ADOFEED [Concomitant]
  10. GASTER [Concomitant]
  11. RADIATION THERAPY [Concomitant]

REACTIONS (17)
  - ALANINE AMINOTRANSFERASE INCREASED [None]
  - ANOREXIA [None]
  - ASPARTATE AMINOTRANSFERASE INCREASED [None]
  - BLOOD ALKALINE PHOSPHATASE INCREASED [None]
  - DYSPNOEA [None]
  - INSOMNIA [None]
  - LIVER DISORDER [None]
  - MALAISE [None]
  - MALIGNANT NEOPLASM PROGRESSION [None]
  - METASTASES TO LYMPH NODES [None]
  - NAUSEA [None]
  - NON-SMALL CELL LUNG CANCER [None]
  - OEDEMA PERIPHERAL [None]
  - PLEURAL EFFUSION [None]
  - PO2 DECREASED [None]
  - RASH [None]
  - TESTICULAR SWELLING [None]
